FAERS Safety Report 25583990 (Version 2)
Quarter: 2025Q3

REPORT INFORMATION
  Report Type: Report from Study
  Country: US (occurrence: US)
  Receive Date: 20250721
  Receipt Date: 20250905
  Transmission Date: 20251021
  Serious: No
  Sender: SUNOVION
  Company Number: US-SMPA-2025SPA008538AA

PATIENT
  Age: 67 Year
  Sex: Male

DRUGS (7)
  1. ORGOVYX [Suspect]
     Active Substance: RELUGOLIX
     Indication: Prostate cancer
     Route: 048
  2. ORGOVYX [Suspect]
     Active Substance: RELUGOLIX
     Route: 048
  3. TAMSULOSIN [Concomitant]
     Active Substance: TAMSULOSIN
  4. LOSARTAN [Concomitant]
     Active Substance: LOSARTAN
  5. FISH OIL [Concomitant]
     Active Substance: FISH OIL
  6. Balance of nature fruits [Concomitant]
  7. Balance of nature veggies [Concomitant]

REACTIONS (4)
  - Lethargy [Unknown]
  - Loss of libido [Unknown]
  - Hot flush [Unknown]
  - Arthralgia [Unknown]
